FAERS Safety Report 23191507 (Version 1)
Quarter: 2023Q4

REPORT INFORMATION
  Report Type: Spontaneous
  Country: US (occurrence: US)
  Receive Date: 20231116
  Receipt Date: 20231116
  Transmission Date: 20240110
  Serious: No
  Sender: FDA-Public Use
  Company Number: US-BAYER-2023A157306

PATIENT
  Age: 70 Year
  Sex: Male

DRUGS (1)
  1. CIPRO [Suspect]
     Active Substance: CIPROFLOXACIN HYDROCHLORIDE
     Dosage: UNK
     Route: 048
     Dates: start: 20231101, end: 20231101

REACTIONS (5)
  - Headache [None]
  - Hypoaesthesia [None]
  - Paraesthesia [None]
  - Dizziness [None]
  - Ocular hyperaemia [None]

NARRATIVE: CASE EVENT DATE: 20231102
